FAERS Safety Report 8523412-3 (Version None)
Quarter: 2012Q3

REPORT INFORMATION
  Report Type: 
  Country: None (occurrence: None)
  Receive Date: 20120720
  Receipt Date: 20120712
  Transmission Date: 20120928
  Serious: Yes (Hospitalization, Other)
  Sender: FDA-Public Use
  Company Number: US-BAYER-201015509NA

PATIENT
  Age: 18 Year
  Sex: Female
  Weight: 79 kg

DRUGS (6)
  1. YASMIN [Suspect]
     Indication: CONTRACEPTION
     Dosage: UNK
     Route: 048
     Dates: start: 20041101, end: 20060201
  2. YASMIN [Suspect]
     Indication: PREMENSTRUAL SYNDROME
  3. YASMIN [Suspect]
     Indication: MOOD SWINGS
  4. YASMIN [Suspect]
     Indication: MENORRHAGIA
  5. YASMIN [Suspect]
     Indication: DYSMENORRHOEA
  6. YASMIN [Suspect]
     Indication: ACNE
     Dosage: UNK
     Dates: start: 20070601

REACTIONS (8)
  - SCAR [None]
  - NAUSEA [None]
  - BILIARY DYSKINESIA [None]
  - ABDOMINAL PAIN UPPER [None]
  - GALLBLADDER DISORDER [None]
  - DYSPNOEA [None]
  - DIARRHOEA [None]
  - IRRITABLE BOWEL SYNDROME [None]
